FAERS Safety Report 15901024 (Version 3)
Quarter: 2023Q4

REPORT INFORMATION
  Report Type: Spontaneous
  Country: US (occurrence: US)
  Receive Date: 20190201
  Receipt Date: 20231113
  Transmission Date: 20240110
  Serious: Yes (Other)
  Sender: FDA-Public Use
  Company Number: US-GILEAD-2019-0387831

PATIENT
  Age: 57 Year
  Sex: Female
  Weight: 121.11 kg

DRUGS (57)
  1. TRUVADA [Suspect]
     Active Substance: EMTRICITABINE\TENOFOVIR DISOPROXIL FUMARATE
     Indication: HIV infection
     Dosage: UNK
     Route: 048
     Dates: start: 2005
  2. TRUVADA [Suspect]
     Active Substance: EMTRICITABINE\TENOFOVIR DISOPROXIL FUMARATE
     Dosage: UNK
     Route: 048
     Dates: start: 20100602, end: 20150328
  3. STRIBILD [Suspect]
     Active Substance: COBICISTAT\ELVITEGRAVIR\EMTRICITABINE\TENOFOVIR DISOPROXIL FUMARATE
     Indication: HIV infection
     Dosage: UNK
     Route: 048
     Dates: start: 2005
  4. STRIBILD [Suspect]
     Active Substance: COBICISTAT\ELVITEGRAVIR\EMTRICITABINE\TENOFOVIR DISOPROXIL FUMARATE
     Dosage: UNK
     Route: 048
     Dates: start: 201504
  5. VIREAD [Suspect]
     Active Substance: TENOFOVIR DISOPROXIL FUMARATE
     Indication: HIV infection
     Dosage: UNK
     Route: 065
     Dates: start: 2013, end: 20141113
  6. COMBIVIR [Concomitant]
     Active Substance: LAMIVUDINE\ZIDOVUDINE
  7. EMTRIVA [Concomitant]
     Active Substance: EMTRICITABINE
  8. GENVOYA [Concomitant]
     Active Substance: COBICISTAT\ELVITEGRAVIR\EMTRICITABINE\TENOFOVIR ALAFENAMIDE FUMARATE
  9. KALETRA [Concomitant]
     Active Substance: LOPINAVIR\RITONAVIR
  10. LEXIVA [Concomitant]
     Active Substance: FOSAMPRENAVIR CALCIUM
  11. NORVIR [Concomitant]
     Active Substance: RITONAVIR
  12. SUSTIVA [Concomitant]
     Active Substance: EFAVIRENZ
  13. TOBRAMYCIN [Concomitant]
     Active Substance: TOBRAMYCIN
  14. IBUPROFEN [Concomitant]
     Active Substance: IBUPROFEN
  15. NAPROXEN [Concomitant]
     Active Substance: NAPROXEN
  16. ACETAMINOPHEN AND CODEINE [Concomitant]
     Active Substance: ACETAMINOPHEN\CODEINE PHOSPHATE
  17. AMLODIPINE BESYLATE [Concomitant]
     Active Substance: AMLODIPINE BESYLATE
  18. ASPIRIN [Concomitant]
     Active Substance: ASPIRIN
  19. ATARAX [Concomitant]
     Active Substance: HYDROXYZINE HYDROCHLORIDE
  20. TENORMIN [Concomitant]
     Active Substance: ATENOLOL
  21. AZITHROMYCIN [Concomitant]
     Active Substance: AZITHROMYCIN
  22. BENADRYL [Concomitant]
     Active Substance: DIPHENHYDRAMINE HYDROCHLORIDE
  23. BENZONATATE [Concomitant]
     Active Substance: BENZONATATE
  24. CIPROFLOXACIN HYDROCHLORIDE [Concomitant]
     Active Substance: CIPROFLOXACIN HYDROCHLORIDE
  25. CLARITIN [Concomitant]
     Active Substance: LORATADINE
  26. CYCLOBENZAPRINE [Concomitant]
     Active Substance: CYCLOBENZAPRINE
  27. PREDNISOLONE [Concomitant]
     Active Substance: PREDNISOLONE
  28. DOXYCYCLINE [Concomitant]
     Active Substance: DOXYCYCLINE
  29. DUREZOL [Concomitant]
     Active Substance: DIFLUPREDNATE
  30. FUROSEMIDE [Concomitant]
     Active Substance: FUROSEMIDE
  31. GABAPENTIN [Concomitant]
     Active Substance: GABAPENTIN
  32. HYDROCODONE BITARTRATE AND ACETAMINOPHEN [Concomitant]
     Active Substance: ACETAMINOPHEN\HYDROCODONE BITARTRATE
  33. GRAMICIDIN\NEOMYCIN SULFATE\NYSTATIN\TRIAMCINOLONE ACETONIDE [Concomitant]
     Active Substance: GRAMICIDIN\NEOMYCIN SULFATE\NYSTATIN\TRIAMCINOLONE ACETONIDE
  34. HYDROCORTISONE VALERATE [Concomitant]
     Active Substance: HYDROCORTISONE VALERATE
  35. KEPPRA [Concomitant]
     Active Substance: LEVETIRACETAM
  36. LISINOPRIL [Concomitant]
     Active Substance: LISINOPRIL
  37. LOPERAMIDE [Concomitant]
     Active Substance: LOPERAMIDE
  38. MECLIZINE HYDROCHLORIDE [Concomitant]
     Active Substance: MECLIZINE HYDROCHLORIDE
  39. LEVAQUIN [Concomitant]
     Active Substance: LEVOFLOXACIN
  40. MELOXICAM [Concomitant]
     Active Substance: MELOXICAM
  41. METOCLOPRAMIDE [Concomitant]
     Active Substance: METOCLOPRAMIDE
  42. PRAVACHOL [Concomitant]
     Active Substance: PRAVASTATIN SODIUM
  43. TYLENOL WITH CODEINE [Concomitant]
     Active Substance: ACETAMINOPHEN\CODEINE PHOSPHATE
  44. METRONIDAZOLE [Concomitant]
     Active Substance: METRONIDAZOLE
  45. OMEPRAZOLE [Concomitant]
     Active Substance: OMEPRAZOLE
  46. TRAMADOL [Concomitant]
     Active Substance: TRAMADOL\TRAMADOL HYDROCHLORIDE
  47. PROMETHAZINE [Concomitant]
     Active Substance: PROMETHAZINE HYDROCHLORIDE
  48. RANITIDINE [Concomitant]
     Active Substance: RANITIDINE
  49. ERGOCALCIFEROL [Concomitant]
     Active Substance: ERGOCALCIFEROL
  50. VITAMIN D2 [Concomitant]
     Active Substance: ERGOCALCIFEROL
  51. PHENAZOPYRIDINE [Concomitant]
     Active Substance: PHENAZOPYRIDINE
  52. DOXYCYCLINE [DOXYCYCLINE MONOHYDRATE] [Concomitant]
  53. METHYLPREDNISOLONE [Concomitant]
     Active Substance: METHYLPREDNISOLONE
  54. CIPROFLOXACIN [Concomitant]
     Active Substance: CIPROFLOXACIN
  55. CHOLECALCIFEROL [Concomitant]
     Active Substance: CHOLECALCIFEROL
  56. VITAMIN D3 [Concomitant]
     Active Substance: CHOLECALCIFEROL
  57. PREDNISOLONE [Concomitant]
     Active Substance: PREDNISOLONE

REACTIONS (10)
  - Osteoporosis [Unknown]
  - Renal impairment [Not Recovered/Not Resolved]
  - Bone density decreased [Unknown]
  - Loss of personal independence in daily activities [Not Recovered/Not Resolved]
  - Gait disturbance [Not Recovered/Not Resolved]
  - Pain [Not Recovered/Not Resolved]
  - Emotional distress [Not Recovered/Not Resolved]
  - Anxiety [Not Recovered/Not Resolved]
  - Anhedonia [Not Recovered/Not Resolved]
  - Economic problem [Not Recovered/Not Resolved]

NARRATIVE: CASE EVENT DATE: 20150914
